FAERS Safety Report 15179993 (Version 2)
Quarter: 2018Q4

REPORT INFORMATION
  Report Type: Spontaneous
  Country: US (occurrence: US)
  Receive Date: 20180723
  Receipt Date: 20181011
  Transmission Date: 20190204
  Serious: No
  Sender: FDA-Public Use
  Company Number: US-PFIZER INC-2018290413

PATIENT
  Age: 65 Year
  Sex: Female
  Weight: 123.8 kg

DRUGS (12)
  1. AMBRISENTAN [Suspect]
     Active Substance: AMBRISENTAN
     Dosage: 10 MG, QD
     Route: 065
     Dates: start: 20180324
  2. TREPROSTINIL. [Suspect]
     Active Substance: TREPROSTINIL
     Dosage: 27.5 NG/KG/MIN, EVERY 48 HOURS (Q48H)
     Route: 058
  3. TREPROSTINIL. [Suspect]
     Active Substance: TREPROSTINIL
     Dosage: 15.50 NG/KG/MIN, UNK
     Route: 058
     Dates: start: 2018
  4. REMODULIN [Suspect]
     Active Substance: TREPROSTINIL
     Indication: PULMONARY ARTERIAL HYPERTENSION
     Dosage: 0.0155 UG/KG, (15.50 NG/KG/MIN) UNK
     Route: 058
     Dates: start: 20180322
  5. AMBRISENTAN [Suspect]
     Active Substance: AMBRISENTAN
     Indication: PULMONARY HYPERTENSION
     Dosage: 5 MG, QD
     Route: 065
     Dates: start: 20180304
  6. SILDENAFIL CITRATE. [Suspect]
     Active Substance: SILDENAFIL CITRATE
     Indication: PULMONARY HYPERTENSION
     Dosage: UNK
  7. REMODULIN [Suspect]
     Active Substance: TREPROSTINIL
     Dosage: 0.0275 UG/KG, Q48H
     Route: 058
     Dates: start: 20180323
  8. REMODULIN [Suspect]
     Active Substance: TREPROSTINIL
     Dosage: 0.0235 UG/KG, UNK
     Route: 058
  9. TREPROSTINIL. [Suspect]
     Active Substance: TREPROSTINIL
     Dosage: 21 NG/KG/MIN, UNK
     Route: 058
     Dates: start: 2018
  10. REMODULIN [Suspect]
     Active Substance: TREPROSTINIL
     Dosage: 0.021 UG/KG, UNK
     Route: 058
     Dates: start: 20180324
  11. REMODULIN [Suspect]
     Active Substance: TREPROSTINIL
     Dosage: 0.022 UG/KG, UNK
     Route: 058
  12. TREPROSTINIL. [Suspect]
     Active Substance: TREPROSTINIL
     Dosage: 22 NG/KG/MIN, UNK
     Route: 058
     Dates: start: 2018

REACTIONS (10)
  - Fatigue [Not Recovered/Not Resolved]
  - Nausea [Unknown]
  - Vomiting [Unknown]
  - Headache [Unknown]
  - Pain in extremity [Unknown]
  - Palpitations [Unknown]
  - Flushing [Unknown]
  - Pain in jaw [Unknown]
  - Nasal congestion [Unknown]
  - Musculoskeletal discomfort [Unknown]

NARRATIVE: CASE EVENT DATE: 20180507
